FAERS Safety Report 22609074 (Version 1)
Quarter: 2023Q2

REPORT INFORMATION
  Report Type: Spontaneous
  Country: US (occurrence: US)
  Receive Date: 20230616
  Receipt Date: 20230616
  Transmission Date: 20230722
  Serious: Yes (Other)
  Sender: FDA-Public Use
  Company Number: US-SA-SAC20230615000295

PATIENT
  Age: 63 Year
  Sex: Male

DRUGS (1)
  1. SARCLISA [Suspect]
     Active Substance: ISATUXIMAB-IRFC
     Indication: Plasma cell myeloma
     Dosage: 1500 MG, QOW
     Route: 042
     Dates: start: 20230127

REACTIONS (7)
  - Neuropathy peripheral [Unknown]
  - Pain [Unknown]
  - Sleep disorder [Unknown]
  - Intervertebral disc compression [Unknown]
  - Asthenia [Unknown]
  - Hypersomnia [Unknown]
  - Gait disturbance [Unknown]
